FAERS Safety Report 10198156 (Version 1)
Quarter: 2014Q2

REPORT INFORMATION
  Report Type: Spontaneous
  Country: US (occurrence: None)
  Receive Date: 20140523
  Receipt Date: 20140523
  Transmission Date: 20141212
  Serious: No
  Sender: FDA-Public Use
  Company Number: None

PATIENT
  Age: 27 Year
  Sex: Female
  Weight: 99.79 kg

DRUGS (1)
  1. METHYLPHENIDATE ER 27 MG KREMERS URBAN PHARMACEUTICALS INC. [Suspect]
     Indication: ATTENTION DEFICIT/HYPERACTIVITY DISORDER
     Dosage: 1 PILL EVERY MORNING, ONCE DAILY, TAKEN BY MOUTH
     Route: 048
     Dates: start: 20140410, end: 20140507

REACTIONS (2)
  - Drug ineffective [None]
  - Product substitution issue [None]
